FAERS Safety Report 14683700 (Version 1)
Quarter: 2018Q1

REPORT INFORMATION
  Report Type: Spontaneous
  Country: GB (occurrence: GB)
  Receive Date: 20180327
  Receipt Date: 20180327
  Transmission Date: 20180509
  Serious: Yes (Hospitalization, Other)
  Sender: FDA-Public Use
  Company Number: GB-BAXTER-2018BAX009170

PATIENT

DRUGS (1)
  1. ARTISS FROZEN [Suspect]
     Active Substance: FIBRINOGEN HUMAN\THROMBIN HUMAN
     Indication: TISSUE SEALING
     Route: 065

REACTIONS (3)
  - Infected seroma [Not Recovered/Not Resolved]
  - Sepsis [Not Recovered/Not Resolved]
  - Procedural complication [Unknown]
